FAERS Safety Report 13447035 (Version 1)
Quarter: 2017Q2

REPORT INFORMATION
  Report Type: Spontaneous
  Country: US (occurrence: US)
  Receive Date: 20170414
  Receipt Date: 20170414
  Transmission Date: 20170830
  Serious: Yes (Hospitalization)
  Sender: FDA-Public Use
  Company Number: None

PATIENT
  Age: 26 Year
  Sex: Female
  Weight: 60.75 kg

DRUGS (1)
  1. ASCORBIC ACID. [Suspect]
     Active Substance: ASCORBIC ACID
     Indication: PROPHYLAXIS
     Route: 041
     Dates: start: 20170410, end: 20170410

REACTIONS (4)
  - Vomiting [None]
  - Viral upper respiratory tract infection [None]
  - Renal pain [None]
  - Chills [None]

NARRATIVE: CASE EVENT DATE: 20170410
